FAERS Safety Report 4292057-6 (Version None)
Quarter: 2004Q1

REPORT INFORMATION
  Report Type: 
  Country: None (occurrence: None)
  Receive Date: 20040211
  Receipt Date: 20040122
  Transmission Date: 20041129
  Serious: Yes (Disabling, Other)
  Sender: FDA-Public Use
  Company Number: WAES 0401USA01697

PATIENT
  Sex: Female

DRUGS (4)
  1. VIOXX [Suspect]
     Indication: LOCALISED OSTEOARTHRITIS
     Route: 048
     Dates: start: 20020101, end: 20020101
  2. VIOXX [Suspect]
     Route: 048
     Dates: start: 20030101
  3. VIOXX [Suspect]
     Indication: OSTEOARTHRITIS
     Route: 048
     Dates: start: 20020101, end: 20020101
  4. VIOXX [Suspect]
     Route: 048
     Dates: start: 20030101

REACTIONS (3)
  - ADVERSE EVENT [None]
  - OSTEOARTHRITIS [None]
  - UNEXPECTED THERAPEUTIC DRUG EFFECT [None]
